FAERS Safety Report 23284055 (Version 15)
Quarter: 2025Q3

REPORT INFORMATION
  Report Type: Spontaneous
  Country: JP (occurrence: JP)
  Receive Date: 20231211
  Receipt Date: 20250815
  Transmission Date: 20251020
  Serious: Yes (Hospitalization, Other)
  Sender: TAKEDA
  Company Number: JP-TAKEDA-2023TUS118885

PATIENT
  Age: 50 Year
  Sex: Female
  Weight: 50.7 kg

DRUGS (14)
  1. LIALDA [Suspect]
     Active Substance: MESALAMINE
     Indication: Colitis ulcerative
     Dosage: 4800 MILLIGRAM, QD
  2. OMVOH [Suspect]
     Active Substance: MIRIKIZUMAB-MRKZ
     Indication: Product used for unknown indication
  3. OMVOH [Suspect]
     Active Substance: MIRIKIZUMAB-MRKZ
  4. ADALIMUMAB [Suspect]
     Active Substance: ADALIMUMAB
     Indication: Colitis ulcerative
  5. ADALIMUMAB [Suspect]
     Active Substance: ADALIMUMAB
  6. ADALIMUMAB [Suspect]
     Active Substance: ADALIMUMAB
     Dosage: 80 MILLIGRAM, QD
     Dates: start: 2023
  7. AZATHIOPRINE [Suspect]
     Active Substance: AZATHIOPRINE
     Indication: Colitis ulcerative
  8. VONOPRAZAN FUMARATE [Concomitant]
     Active Substance: VONOPRAZAN FUMARATE
  9. REBAMIPIDE [Concomitant]
     Active Substance: REBAMIPIDE
  10. CLONAZEPAM [Concomitant]
     Active Substance: CLONAZEPAM
  11. VALPROATE SODIUM [Concomitant]
     Active Substance: VALPROATE SODIUM
  12. LOMERIZINE HYDROCHLORIDE [Concomitant]
     Active Substance: LOMERIZINE HYDROCHLORIDE
  13. CARBIDOPA\LEVODOPA [Concomitant]
     Active Substance: CARBIDOPA\LEVODOPA
  14. PREDNISOLONE [Concomitant]
     Active Substance: PREDNISOLONE
     Indication: Colitis ulcerative

REACTIONS (20)
  - Myelosuppression [Unknown]
  - Colitis ulcerative [Recovering/Resolving]
  - Haematochezia [Recovering/Resolving]
  - Diarrhoea haemorrhagic [Unknown]
  - Drug ineffective [Unknown]
  - Impaired healing [Unknown]
  - Defaecation urgency [Recovering/Resolving]
  - Cough [Unknown]
  - Thirst [Unknown]
  - Productive cough [Unknown]
  - Haemoglobin decreased [Unknown]
  - Red blood cell sedimentation rate increased [Unknown]
  - Frequent bowel movements [Recovering/Resolving]
  - Inflammatory marker increased [Unknown]
  - White blood cell disorder [Unknown]
  - C-reactive protein abnormal [Unknown]
  - Rash [Unknown]
  - Diarrhoea [Unknown]
  - Abdominal pain [Recovered/Resolved]
  - Pyrexia [Unknown]

NARRATIVE: CASE EVENT DATE: 20090101
